FAERS Safety Report 9831525 (Version 1)
Quarter: 2014Q1

REPORT INFORMATION
  Report Type: Spontaneous
  Country: US (occurrence: US)
  Receive Date: 20140121
  Receipt Date: 20140121
  Transmission Date: 20141002
  Serious: Yes (Other)
  Sender: FDA-Public Use
  Company Number: US-ASTRAZENECA-2014SE02593

PATIENT
  Sex: Male

DRUGS (2)
  1. NEXIUM [Suspect]
     Route: 048
  2. PROTONIX [Suspect]
     Dosage: 30 MIN BEFORE MEAL
     Route: 065

REACTIONS (2)
  - Neoplasm malignant [Unknown]
  - Impaired gastric emptying [Unknown]
